FAERS Safety Report 12361388 (Version 1)
Quarter: 2016Q2

REPORT INFORMATION
  Report Type: Spontaneous
  Country: US (occurrence: US)
  Receive Date: 20160512
  Receipt Date: 20160512
  Transmission Date: 20160815
  Serious: No
  Sender: FDA-Public Use
  Company Number: US-SA-2016SA023821

PATIENT
  Age: 71 Year
  Sex: Male

DRUGS (4)
  1. ALIROCUMAB PREFILLED PEN [Concomitant]
     Active Substance: ALIROCUMAB
     Indication: TYPE IIA HYPERLIPIDAEMIA
     Route: 058
     Dates: start: 201509
  2. PRALUENT [Suspect]
     Active Substance: ALIROCUMAB
     Indication: CAROTID ARTERY STENOSIS
     Route: 058
     Dates: start: 201509
  3. PRALUENT [Suspect]
     Active Substance: ALIROCUMAB
     Indication: TYPE IIA HYPERLIPIDAEMIA
     Route: 058
     Dates: start: 201509
  4. ALIROCUMAB PREFILLED PEN [Concomitant]
     Active Substance: ALIROCUMAB
     Indication: CAROTID ARTERY STENOSIS
     Route: 058
     Dates: start: 201509

REACTIONS (3)
  - Malaise [Unknown]
  - Dizziness [Unknown]
  - Cold sweat [Unknown]

NARRATIVE: CASE EVENT DATE: 20160128
